FAERS Safety Report 9657083 (Version 2)
Quarter: 2013Q4

REPORT INFORMATION
  Report Type: Spontaneous
  Country: AU (occurrence: AU)
  Receive Date: 20131030
  Receipt Date: 20131030
  Transmission Date: 20140711
  Serious: Yes (Other)
  Sender: FDA-Public Use
  Company Number: PHHY2013AU093304

PATIENT
  Age: 63 Year
  Sex: Female

DRUGS (1)
  1. FEMARA [Suspect]
     Indication: BREAST CANCER METASTATIC
     Dosage: 2.5 MG, UNK
     Route: 048
     Dates: start: 201005, end: 201308

REACTIONS (3)
  - Pulmonary mass [Unknown]
  - Breast cancer [Unknown]
  - Malignant neoplasm progression [Unknown]
